FAERS Safety Report 22029338 (Version 1)
Quarter: 2023Q1

REPORT INFORMATION
  Report Type: Spontaneous
  Country: NL (occurrence: NL)
  Receive Date: 20230223
  Receipt Date: 20230223
  Transmission Date: 20230418
  Serious: Yes (Other)
  Sender: FDA-Public Use
  Company Number: None

PATIENT
  Sex: Male
  Weight: 82 kg

DRUGS (1)
  1. CLOPIDOGREL [Suspect]
     Active Substance: CLOPIDOGREL BISULFATE
     Indication: Transient ischaemic attack
     Dosage: 75 MG (MILLIGRAM), CLOPIDOGREL TABLET   75MG / BRAND NAME NOT SPECIFIED
     Route: 065
     Dates: start: 20210105

REACTIONS (2)
  - Drug ineffective [Not Recovered/Not Resolved]
  - Transient ischaemic attack [Not Recovered/Not Resolved]
